FAERS Safety Report 23468306 (Version 1)
Quarter: 2024Q1

REPORT INFORMATION
  Report Type: Report from Study
  Country: PL (occurrence: PL)
  Receive Date: 20240201
  Receipt Date: 20240201
  Transmission Date: 20240410
  Serious: Yes (Other)
  Sender: FDA-Public Use
  Company Number: PL-TAKEDA-2024TUS008159

PATIENT
  Age: 46 Year
  Sex: Female
  Weight: 50 kg

DRUGS (2)
  1. VEDOLIZUMAB [Suspect]
     Active Substance: VEDOLIZUMAB
     Indication: Crohn^s disease
     Dosage: 400 MILLIGRAM, MONTHLY
     Route: 042
     Dates: start: 20200706
  2. PENTASA [Concomitant]
     Active Substance: MESALAMINE
     Indication: Crohn^s disease
     Dosage: 2 GRAM
     Route: 048
     Dates: start: 20000101

REACTIONS (2)
  - Anaemia [Recovered/Resolved]
  - Off label use [Unknown]

NARRATIVE: CASE EVENT DATE: 20200706
